FAERS Safety Report 15608097 (Version 1)
Quarter: 2018Q4

REPORT INFORMATION
  Report Type: Spontaneous
  Country: DE (occurrence: DE)
  Receive Date: 20181112
  Receipt Date: 20181112
  Transmission Date: 20190205
  Serious: Yes (Other)
  Sender: FDA-Public Use
  Company Number: DE-PFIZER INC-2018455456

PATIENT
  Age: 71 Year
  Sex: Male
  Weight: 74 kg

DRUGS (2)
  1. FILGRASTIM [Suspect]
     Active Substance: FILGRASTIM
     Dosage: 48 MIO IU,
     Dates: start: 20170117, end: 20170118
  2. FILGRASTIM [Suspect]
     Active Substance: FILGRASTIM
     Dosage: 48 MIO IU,
     Dates: start: 20170123, end: 20170124

REACTIONS (4)
  - Metastasis [Unknown]
  - Balance disorder [Recovered/Resolved]
  - Muscular weakness [Recovered/Resolved]
  - Restlessness [Recovered/Resolved]

NARRATIVE: CASE EVENT DATE: 20170202
